FAERS Safety Report 16367325 (Version 1)
Quarter: 2019Q2

REPORT INFORMATION
  Report Type: Spontaneous
  Country: US (occurrence: US)
  Receive Date: 20190422
  Receipt Date: 20190422
  Transmission Date: 20190711
  Serious: Yes (Other)
  Sender: FDA-Public Use
  Company Number: None

PATIENT
  Age: 79 Year
  Sex: Male
  Weight: 68 kg

DRUGS (1)
  1. LEUPROLIDE [Suspect]
     Active Substance: LEUPROLIDE
     Route: 058
     Dates: start: 20190108

REACTIONS (2)
  - Blood testosterone abnormal [None]
  - Therapy non-responder [None]

NARRATIVE: CASE EVENT DATE: 20190408
